FAERS Safety Report 11882638 (Version 1)
Quarter: 2015Q4

REPORT INFORMATION
  Report Type: Spontaneous
  Country: US (occurrence: US)
  Receive Date: 20151231
  Receipt Date: 20151231
  Transmission Date: 20160305
  Serious: No
  Sender: FDA-Public Use
  Company Number: US-BAYER-2015-494597

PATIENT
  Age: 88 Year
  Sex: Male
  Weight: 87.53 kg

DRUGS (4)
  1. MIRALAX [Suspect]
     Active Substance: POLYETHYLENE GLYCOL 3350
     Indication: CONSTIPATION
     Dosage: 1 DF, PRN
     Route: 048
  2. PHILLIPS^ COLON HEALTH [Suspect]
     Active Substance: PROBIOTICS NOS
     Indication: PROBIOTIC THERAPY
     Dosage: 1 DF, AFTER MEALS
     Route: 048
     Dates: start: 20151208
  3. PHILLIPS^ COLON HEALTH [Suspect]
     Active Substance: PROBIOTICS NOS
     Indication: CONSTIPATION
  4. MILK OF MAGNESIA ORIGINAL [Suspect]
     Active Substance: MAGNESIUM HYDROXIDE
     Indication: CONSTIPATION
     Dosage: UNK

REACTIONS (2)
  - Drug ineffective [None]
  - Product use issue [None]
